FAERS Safety Report 18879256 (Version 1)
Quarter: 2021Q1

REPORT INFORMATION
  Report Type: Other
  Country: GB (occurrence: GB)
  Receive Date: 20210211
  Receipt Date: 20210211
  Transmission Date: 20210420
  Serious: Yes (Other)
  Sender: FDA-Public Use
  Company Number: GB-STRIDES ARCOLAB LIMITED-2021SP001725

PATIENT
  Age: 46 Year
  Sex: Female
  Weight: 171 kg

DRUGS (22)
  1. ATORVASTATIN [Concomitant]
     Active Substance: ATORVASTATIN
     Indication: PRODUCT USED FOR UNKNOWN INDICATION
     Dosage: 1 DOSAGE FORM PER DAY
     Route: 065
     Dates: start: 20150507
  2. COTRIMOXAZOLE [Concomitant]
     Active Substance: SULFAMETHOXAZOLE\TRIMETHOPRIM
     Indication: PRODUCT USED FOR UNKNOWN INDICATION
     Dosage: 2 DOSAGE FORM PER DAY
     Route: 065
     Dates: start: 20201222, end: 20201229
  3. DOMPERIDONE [Concomitant]
     Active Substance: DOMPERIDONE
     Indication: PRODUCT USED FOR UNKNOWN INDICATION
     Dosage: 2 DOSAGE FORM PER DAY
     Route: 065
     Dates: start: 20170221
  4. SHORTEC [Concomitant]
     Active Substance: OXYCODONE HYDROCHLORIDE
     Indication: PRODUCT USED FOR UNKNOWN INDICATION
     Dosage: 2 DOSAGE FORM, UP TO 4 TIMES DAILY
     Route: 065
     Dates: start: 20191231
  5. CENTRUM A TO ZINC [Concomitant]
     Active Substance: MINERALS\VITAMINS
     Indication: PRODUCT USED FOR UNKNOWN INDICATION
     Dosage: 1 DOSAGE FORM PER DAY
     Route: 065
     Dates: start: 20150507
  6. DULOXETINE. [Concomitant]
     Active Substance: DULOXETINE
     Indication: PRODUCT USED FOR UNKNOWN INDICATION
     Dosage: 2 DOSAGE FORM PER DAY
     Route: 065
     Dates: start: 20150507
  7. EUMOVATE [Concomitant]
     Active Substance: CLOBETASONE BUTYRATE
     Indication: PRODUCT USED FOR UNKNOWN INDICATION
     Dosage: 1 DOSAGE FORM PER DAY , TO THE LEGS
     Route: 065
     Dates: start: 20190729
  8. FEXOFENADINE [Concomitant]
     Active Substance: FEXOFENADINE HYDROCHLORIDE
     Indication: PRODUCT USED FOR UNKNOWN INDICATION
     Dosage: 2 DOSAGE FORM PER DAY
     Route: 065
     Dates: start: 20190513
  9. LONGTEC [Concomitant]
     Active Substance: OXYCODONE HYDROCHLORIDE
     Indication: PRODUCT USED FOR UNKNOWN INDICATION
     Dosage: 1 DOSAGE FORM, EVERY 12 HRS
     Route: 065
     Dates: start: 20160308
  10. FOLIC ACID. [Concomitant]
     Active Substance: FOLIC ACID
     Indication: PRODUCT USED FOR UNKNOWN INDICATION
     Dosage: 1 DOSAGE FORM PER DAY, PHARMACEUTICAL DOSAGE FORM WAS 245
     Route: 065
     Dates: start: 20190410
  11. SALBUTAMOL [Concomitant]
     Active Substance: ALBUTEROL
     Indication: PRODUCT USED FOR UNKNOWN INDICATION
     Dosage: 2 DOSAGE FORM AS NECASSARY
     Dates: start: 20201105
  12. HYDROXOCOBALAMIN [Concomitant]
     Active Substance: HYDROXOCOBALAMIN
     Indication: PRODUCT USED FOR UNKNOWN INDICATION
     Dosage: UNK, USE AS DIRECTED
     Route: 065
     Dates: start: 20201218
  13. PARACETAMOL [Concomitant]
     Active Substance: ACETAMINOPHEN
     Indication: PRODUCT USED FOR UNKNOWN INDICATION
     Dosage: UNK, TAKE 1 OR 2 4 TIMES/DAY
     Route: 065
     Dates: start: 20150507
  14. DESOGESTREL [Concomitant]
     Active Substance: DESOGESTREL
     Indication: PRODUCT USED FOR UNKNOWN INDICATION
     Dosage: 2 DOSAGE FORM PER DAY
     Route: 065
     Dates: start: 20190114
  15. FERROUS FUMARATE [Concomitant]
     Active Substance: FERROUS FUMARATE
     Indication: PRODUCT USED FOR UNKNOWN INDICATION
     Dosage: 3 DOSAGE FORM PER 1 DAY, AS PER SB INSTRUCTION
     Route: 065
     Dates: start: 20150512
  16. SIRDUPLA [Concomitant]
     Active Substance: FLUTICASONE PROPIONATE\SALMETEROL XINAFOATE
     Indication: PRODUCT USED FOR UNKNOWN INDICATION
     Dosage: 4 DOSAGE FORM PER 1 DAY
     Dates: start: 20160202
  17. ZOPICLONE [Concomitant]
     Active Substance: ZOPICLONE
     Indication: PRODUCT USED FOR UNKNOWN INDICATION
     Dosage: 1 DOSAGE FORM PER DAY, NIGHT
     Route: 065
     Dates: start: 20171219
  18. CLARITHROMYCIN. [Suspect]
     Active Substance: CLARITHROMYCIN
     Indication: PRODUCT USED FOR UNKNOWN INDICATION
     Dosage: 500 MILLIGRAM PER 12 HOURS, PHARMACEUTICAL DOSE FORM WAS 245
     Route: 065
     Dates: start: 20210126
  19. BETAHISTINE [Concomitant]
     Active Substance: BETAHISTINE
     Indication: PRODUCT USED FOR UNKNOWN INDICATION
     Dosage: 3 DOSAGE FORM PER DAY
     Route: 065
     Dates: start: 20170202
  20. DOXYCYCLINE. [Concomitant]
     Active Substance: DOXYCYCLINE
     Indication: PRODUCT USED FOR UNKNOWN INDICATION
     Dosage: 2 DOSAGE FORM PER DAY, PHARMACEUTICAL DOSE FORM 5
     Route: 065
     Dates: start: 20210203
  21. LANSOPRAZOLE. [Concomitant]
     Active Substance: LANSOPRAZOLE
     Indication: PRODUCT USED FOR UNKNOWN INDICATION
     Dosage: 2 DOSAGE FORM PER DAY, MORNING
     Route: 065
     Dates: start: 20150507
  22. COLECALCIFEROL [Concomitant]
     Active Substance: CHOLECALCIFEROL
     Indication: PRODUCT USED FOR UNKNOWN INDICATION
     Dosage: 1 DOSAGE FORM PER DAY, PHARMACEUTICAL DOSE FORM WAS 5
     Route: 065
     Dates: start: 20170818

REACTIONS (4)
  - Pruritus [Recovered/Resolved]
  - Back pain [Recovered/Resolved]
  - Rash macular [Recovered/Resolved]
  - Eye pain [Recovered/Resolved]

NARRATIVE: CASE EVENT DATE: 20210203
